FAERS Safety Report 9254155 (Version 4)
Quarter: 2014Q2

REPORT INFORMATION
  Report Type: Spontaneous
  Country: US (occurrence: US)
  Receive Date: 20130425
  Receipt Date: 20140619
  Transmission Date: 20141212
  Serious: No
  Sender: FDA-Public Use
  Company Number: US-PFIZER INC-2013123374

PATIENT
  Age: 66 Year
  Sex: Female
  Weight: 83.9 kg

DRUGS (11)
  1. SOMAVERT [Suspect]
     Indication: ACROMEGALY
     Dosage: 20 MG, 1X/DAY
     Route: 058
     Dates: start: 201011
  2. SOMAVERT [Suspect]
     Dosage: 20 MG, EVERY OTHER DAY
     Dates: start: 201303
  3. SOMAVERT [Suspect]
     Dosage: 15 MG, DAILY
     Route: 058
     Dates: start: 20131014
  4. FEMARA [Concomitant]
     Dosage: 2.5 MG, UNK
  5. OSCAL 500/ TAB 200 D-3 [Concomitant]
     Dosage: UNK
  6. VITAMIN D [Concomitant]
     Dosage: 400 IU, UNK
  7. VITAMIN D3 [Concomitant]
     Dosage: 1000 IU, UNK
  8. GLUCOSAMINE CHONDROITIN ADVANCED / MSM [Concomitant]
     Dosage: UNK
  9. CENTRUM ULTRA [Concomitant]
     Dosage: UNK
  10. TRIAMT/HCTZ [Concomitant]
     Dosage: HYDROCHLOROTHIAZIDE 25 MG AND TRIAMTERENE 37.5 MG
  11. FISH OIL [Concomitant]

REACTIONS (5)
  - Pain [Unknown]
  - Muscle twitching [Unknown]
  - Disease progression [Unknown]
  - Arthralgia [Unknown]
  - Injection site bruising [Unknown]
